FAERS Safety Report 10056411 (Version 1)
Quarter: 2014Q2

REPORT INFORMATION
  Report Type: Spontaneous
  Country: NL (occurrence: None)
  Receive Date: 20140401
  Receipt Date: 20140401
  Transmission Date: 20141212
  Serious: Yes (Hospitalization)
  Sender: FDA-Public Use
  Company Number: 2014084105

PATIENT
  Age: 73 Year
  Sex: Female

DRUGS (6)
  1. DALTEPARIN SODIUM (DALTEPARIN SODIUM) SOLUTION FOR INJECTION [Suspect]
     Indication: THROMBOSIS PROPHYLAXIS
     Dates: start: 20131224, end: 20140305
  2. LANTUS (INSULIN GLARGINE) [Concomitant]
  3. THYRAX (LEVOTHYROXINE) [Concomitant]
  4. SYMBICORT (BUDESONIDE, FORMOTEROL FUMARATE) [Concomitant]
  5. SERTRALINE (SERTRALINE) [Concomitant]
  6. NOVORAPID (INSULIN ASPART) [Concomitant]

REACTIONS (2)
  - Pyrexia [None]
  - Eosinophilia [None]
